FAERS Safety Report 9758088 (Version 2)
Quarter: 2014Q1

REPORT INFORMATION
  Report Type: Spontaneous
  Country: JP (occurrence: JP)
  Receive Date: 20131216
  Receipt Date: 20140224
  Transmission Date: 20141002
  Serious: Yes (Hospitalization)
  Sender: FDA-Public Use
  Company Number: JP-JNJFOC-20131206180

PATIENT
  Age: 83 Year
  Sex: Female

DRUGS (9)
  1. XARELTO [Suspect]
     Indication: ATRIAL FIBRILLATION
     Route: 048
     Dates: start: 20130918, end: 20131130
  2. BLOPRESS [Concomitant]
     Indication: HYPERTENSION
     Route: 048
     Dates: start: 20080214
  3. DIART [Concomitant]
     Indication: CARDIAC FAILURE
     Route: 048
     Dates: start: 20080214
  4. SPIRONOLACTONE [Concomitant]
     Indication: CARDIAC FAILURE
     Route: 048
     Dates: start: 20080214
  5. DIGOXIN [Concomitant]
     Indication: ATRIAL FIBRILLATION
     Route: 048
     Dates: start: 20080214
  6. UBIDECARENONE [Concomitant]
     Indication: CARDIAC FAILURE
     Route: 048
     Dates: start: 20080214
  7. CORONAMOLE [Concomitant]
     Indication: CARDIAC FAILURE
     Route: 048
     Dates: start: 20080214
  8. DEPAS [Concomitant]
     Indication: ANXIETY
     Route: 048
     Dates: start: 20080214
  9. BROTIZOLAM [Concomitant]
     Indication: INSOMNIA
     Route: 048
     Dates: start: 20080214

REACTIONS (1)
  - Cerebral infarction [Not Recovered/Not Resolved]
